APPROVED DRUG PRODUCT: AZITHROMYCIN
Active Ingredient: AZITHROMYCIN
Strength: EQ 100MG BASE/5ML
Dosage Form/Route: FOR SUSPENSION;ORAL
Application: A205666 | Product #001
Applicant: AMNEAL PHARMACEUTICALS LLC
Approved: Jul 19, 2018 | RLD: No | RS: No | Type: DISCN